FAERS Safety Report 25482957 (Version 1)
Quarter: 2025Q2

REPORT INFORMATION
  Report Type: Spontaneous
  Country: US (occurrence: None)
  Receive Date: 20250626
  Receipt Date: 20250626
  Transmission Date: 20250717
  Serious: Yes (Life-Threatening, Hospitalization)
  Sender: ORION
  Company Number: US-MLMSERVICE-20250618-PI547192-00218-1

PATIENT
  Age: 54 Year
  Sex: Female

DRUGS (3)
  1. METHOTREXATE [Suspect]
     Active Substance: METHOTREXATE
     Indication: Rheumatoid arthritis
     Dosage: LOW-DOSE
  2. ETANERCEPT [Concomitant]
     Active Substance: ETANERCEPT
     Indication: Rheumatoid arthritis
  3. PREDNISONE [Concomitant]
     Active Substance: PREDNISONE
     Indication: Rheumatoid arthritis
     Dosage: TAPERING DOSE

REACTIONS (6)
  - Prescription drug used without a prescription [Recovered/Resolved]
  - Pancytopenia [Recovering/Resolving]
  - Stomatitis [Recovering/Resolving]
  - Myelosuppression [Recovering/Resolving]
  - Toxicity to various agents [Recovering/Resolving]
  - Idiosyncratic drug reaction [Recovering/Resolving]
